FAERS Safety Report 25671277 (Version 2)
Quarter: 2025Q4

REPORT INFORMATION
  Report Type: Spontaneous
  Country: EU (occurrence: EU)
  Receive Date: 20250812
  Receipt Date: 20251002
  Transmission Date: 20260117
  Serious: Yes (Other)
  Sender: AMGEN
  Company Number: EU-AMGEN-GRCSP2025156409

PATIENT

DRUGS (3)
  1. BEVACIZUMAB [Suspect]
     Active Substance: BEVACIZUMAB
     Indication: Hepatocellular carcinoma
     Dosage: UNK
     Route: 065
  2. ATEZOLIZUMAB [Suspect]
     Active Substance: ATEZOLIZUMAB
     Indication: Hepatocellular carcinoma
     Dosage: UNK
     Route: 065
  3. ATEZOLIZUMAB [Suspect]
     Active Substance: ATEZOLIZUMAB
     Indication: Immunosuppressant drug therapy

REACTIONS (13)
  - Hypothyroidism [Unknown]
  - Gastrointestinal haemorrhage [Unknown]
  - Hepatic failure [Unknown]
  - Acute kidney injury [Unknown]
  - Haemorrhage [Unknown]
  - Proteinuria [Unknown]
  - Diarrhoea [Unknown]
  - Pruritus [Unknown]
  - Flushing [Unknown]
  - Hypertension [Unknown]
  - Adverse drug reaction [Unknown]
  - Albuminuria [Unknown]
  - Off label use [Unknown]
